FAERS Safety Report 21390588 (Version 1)
Quarter: 2022Q3

REPORT INFORMATION
  Report Type: Spontaneous
  Country: DE (occurrence: DE)
  Receive Date: 20220929
  Receipt Date: 20220929
  Transmission Date: 20221027
  Serious: Yes (Hospitalization, Other)
  Sender: FDA-Public Use
  Company Number: DE-STRIDES ARCOLAB LIMITED-2022SP012429

PATIENT
  Age: 56 Year
  Sex: Male

DRUGS (7)
  1. TACROLIMUS [Interacting]
     Active Substance: TACROLIMUS
     Indication: Renal transplant
     Dosage: UNK
     Route: 048
  2. MYCOPHENOLATE MOFETIL [Suspect]
     Active Substance: MYCOPHENOLATE MOFETIL
     Indication: Renal transplant
     Dosage: UNK
     Route: 065
  3. PREDNISOLONE [Suspect]
     Active Substance: PREDNISOLONE
     Indication: Renal transplant
     Dosage: UNK
     Route: 065
  4. OMBITASVIR [Interacting]
     Active Substance: OMBITASVIR
     Indication: Hepatitis C
     Dosage: UNK
     Route: 065
  5. PARITAPREVIR [Interacting]
     Active Substance: PARITAPREVIR
     Indication: Hepatitis C
     Dosage: UNK
     Route: 065
  6. RITONAVIR [Interacting]
     Active Substance: RITONAVIR
     Indication: Hepatitis C
     Dosage: UNK
     Route: 065
  7. DASABUVIR [Interacting]
     Active Substance: DASABUVIR
     Indication: Hepatitis C
     Dosage: UNK
     Route: 065

REACTIONS (5)
  - Drug interaction [Unknown]
  - Toxicity to various agents [Unknown]
  - Acute kidney injury [Recovered/Resolved]
  - Hepatitis C [Unknown]
  - Pneumonia [Recovered/Resolved]
